FAERS Safety Report 15697830 (Version 1)
Quarter: 2018Q4

REPORT INFORMATION
  Report Type: Spontaneous
  Country: US (occurrence: US)
  Receive Date: 20181126
  Receipt Date: 20181126
  Transmission Date: 20190205
  Serious: No
  Sender: FDA-Public Use
  Company Number: None

PATIENT
  Age: 58 Year
  Sex: Male

DRUGS (2)
  1. TASIGNA [Suspect]
     Active Substance: NILOTINIB
     Route: 048
     Dates: start: 201809
  2. XANAX [Suspect]
     Active Substance: ALPRAZOLAM

REACTIONS (5)
  - Pruritus [None]
  - Muscle spasms [None]
  - Malaise [None]
  - Faeces discoloured [None]
  - Hypotension [None]

NARRATIVE: CASE EVENT DATE: 20181121
